FAERS Safety Report 19361503 (Version 7)
Quarter: 2021Q3

REPORT INFORMATION
  Report Type: Report from Study
  Country: US (occurrence: US)
  Receive Date: 20210601
  Receipt Date: 20210729
  Transmission Date: 20211014
  Serious: Yes (Hospitalization, Other)
  Sender: FDA-Public Use
  Company Number: US-B.I. PHARMACEUTICALS,INC./RIDGEFIELD-2021-BI-095164

PATIENT
  Age: 46 Year
  Sex: Female

DRUGS (3)
  1. OFEV [Suspect]
     Active Substance: NINTEDANIB
     Dosage: OFEV 150 MG TWICE DAILY
     Dates: start: 20210517, end: 20210714
  2. OFEV [Suspect]
     Active Substance: NINTEDANIB
     Indication: IDIOPATHIC PULMONARY FIBROSIS
     Dosage: OFEV DOSE 300MG DAILY?OFEV 150 MG TWICE DAILY
     Route: 048
     Dates: start: 20210315, end: 20210513
  3. OFEV [Suspect]
     Active Substance: NINTEDANIB
     Dates: start: 20210628

REACTIONS (52)
  - Blood pressure increased [Recovering/Resolving]
  - Hypertension [Unknown]
  - Musculoskeletal pain [Unknown]
  - Balance disorder [Unknown]
  - Heart rate increased [Unknown]
  - Cough [Not Recovered/Not Resolved]
  - Nausea [Not Recovered/Not Resolved]
  - Weight decreased [Unknown]
  - Sensation of foreign body [Unknown]
  - Wheezing [Unknown]
  - Constipation [Unknown]
  - Tachycardia [Unknown]
  - Fatigue [Not Recovered/Not Resolved]
  - Pulmonary fibrosis [Unknown]
  - Dyspnoea [Unknown]
  - Oedema peripheral [Unknown]
  - Memory impairment [Unknown]
  - Musculoskeletal stiffness [Unknown]
  - Tinnitus [Unknown]
  - Insomnia [Unknown]
  - Epistaxis [Unknown]
  - Abdominal pain upper [Unknown]
  - Liver function test increased [Recovering/Resolving]
  - Chest pain [Unknown]
  - Muscular weakness [Unknown]
  - Anxiety [Unknown]
  - Hypoaesthesia [Unknown]
  - Increased tendency to bruise [Unknown]
  - Decreased appetite [Not Recovered/Not Resolved]
  - Abdominal distension [Unknown]
  - Tachycardia [Not Recovered/Not Resolved]
  - Mental impairment [Unknown]
  - Dyspepsia [Unknown]
  - Depression [Unknown]
  - Respiration abnormal [Unknown]
  - Dry eye [Unknown]
  - Abdominal pain [Unknown]
  - Diarrhoea [Unknown]
  - Systemic lupus erythematosus [Unknown]
  - Back pain [Not Recovered/Not Resolved]
  - Headache [Unknown]
  - Alopecia [Unknown]
  - Nasal congestion [Unknown]
  - Dysuria [Unknown]
  - Dizziness [Unknown]
  - Sjogren^s syndrome [Unknown]
  - Haemoptysis [Unknown]
  - Blood glucose increased [Not Recovered/Not Resolved]
  - Dry mouth [Unknown]
  - Mouth ulceration [Unknown]
  - Heart rate irregular [Unknown]
  - Palpitations [Unknown]
